FAERS Safety Report 13006943 (Version 1)
Quarter: 2016Q4

REPORT INFORMATION
  Report Type: Report from Study
  Country: None (occurrence: US)
  Receive Date: 20161207
  Receipt Date: 20161207
  Transmission Date: 20170207
  Serious: Yes (Hospitalization)
  Sender: FDA-Public Use
  Company Number: US-ABBVIE-16K-163-1798774-00

PATIENT
  Sex: Male

DRUGS (1)
  1. HUMIRA [Suspect]
     Active Substance: ADALIMUMAB
     Indication: CROHN^S DISEASE
     Route: 058
     Dates: start: 20161113

REACTIONS (3)
  - Abdominal abscess [Unknown]
  - Hypophagia [Recovering/Resolving]
  - Gastrointestinal pain [Recovering/Resolving]
